FAERS Safety Report 21732793 (Version 1)
Quarter: 2022Q4

REPORT INFORMATION
  Report Type: Spontaneous
  Country: CR (occurrence: CR)
  Receive Date: 20221215
  Receipt Date: 20221215
  Transmission Date: 20230113
  Serious: Yes (Death, Other)
  Sender: FDA-Public Use
  Company Number: CR-SA-SAC20221214001510

PATIENT
  Age: 80 Year
  Sex: Male

DRUGS (1)
  1. IRBESARTAN [Suspect]
     Active Substance: IRBESARTAN
     Indication: Hypertension
     Dosage: UNK
     Dates: start: 202010, end: 202010

REACTIONS (1)
  - Throat cancer [Fatal]

NARRATIVE: CASE EVENT DATE: 20201001
